FAERS Safety Report 13103366 (Version 2)
Quarter: 2017Q1

REPORT INFORMATION
  Report Type: Spontaneous
  Country: BE (occurrence: BE)
  Receive Date: 20170110
  Receipt Date: 20170123
  Transmission Date: 20170428
  Serious: Yes (Other)
  Sender: FDA-Public Use
  Company Number: BE-BIOGEN-2017BI00338575

PATIENT
  Age: 61 Year

DRUGS (1)
  1. TYSABRI [Suspect]
     Active Substance: NATALIZUMAB
     Indication: MULTIPLE SCLEROSIS
     Route: 042
     Dates: start: 2009

REACTIONS (2)
  - Epilepsy [Recovered/Resolved]
  - Streptococcal abscess [Unknown]

NARRATIVE: CASE EVENT DATE: 20161221
